FAERS Safety Report 6274361-5 (Version None)
Quarter: 2009Q3

REPORT INFORMATION
  Report Type: 
  Country: None (occurrence: None)
  Receive Date: 20090720
  Receipt Date: 20090706
  Transmission Date: 20100115
  Serious: Yes (Other)
  Sender: FDA-Public Use
  Company Number: AU-MYLANLABS-2009S1012023

PATIENT
  Age: 86 Year
  Sex: Female

DRUGS (6)
  1. PAXAM [Suspect]
     Indication: EPILEPSY
     Route: 048
     Dates: start: 20090619, end: 20090624
  2. DILATREND [Concomitant]
  3. DIAMICRON [Concomitant]
  4. METFORMIN HCL [Concomitant]
  5. LASIX [Concomitant]
  6. KARVEA [Concomitant]

REACTIONS (4)
  - ABNORMAL BEHAVIOUR [None]
  - CONFUSIONAL STATE [None]
  - DYSPNOEA [None]
  - SOMNOLENCE [None]
